FAERS Safety Report 18743930 (Version 2)
Quarter: 2021Q1

REPORT INFORMATION
  Report Type: Report from Study
  Country: PL (occurrence: PL)
  Receive Date: 20210115
  Receipt Date: 20210208
  Transmission Date: 20210419
  Serious: Yes (Death)
  Sender: FDA-Public Use
  Company Number: PL-REGENERON PHARMACEUTICALS, INC.-2021-12897

PATIENT

DRUGS (2)
  1. EYLEA [Suspect]
     Active Substance: AFLIBERCEPT
     Dosage: 7 INJECTIONS IN THE LEFT EYE
     Route: 031
     Dates: start: 20200203, end: 20201209
  2. EYLEA [Suspect]
     Active Substance: AFLIBERCEPT
     Indication: PRODUCT USED FOR UNKNOWN INDICATION
     Dosage: 7 INJECTIONS IN THE RIGHT EYE
     Dates: start: 20200130, end: 20201216

REACTIONS (1)
  - Death [Fatal]

NARRATIVE: CASE EVENT DATE: 20201230
